FAERS Safety Report 25543815 (Version 1)
Quarter: 2025Q3

REPORT INFORMATION
  Report Type: Other
  Country: EU (occurrence: EU)
  Receive Date: 20250711
  Receipt Date: 20250711
  Transmission Date: 20251020
  Serious: Yes (Death, Hospitalization, Other)
  Sender: ANI
  Company Number: EU-ANIPHARMA-023500

PATIENT
  Sex: Female

DRUGS (3)
  1. PROPAFENONE [Suspect]
     Active Substance: PROPAFENONE
     Indication: Atrial fibrillation
  2. TRIMETAZIDINE DIHYDROCHLORIDE [Concomitant]
     Active Substance: TRIMETAZIDINE DIHYDROCHLORIDE
     Indication: Atrial fibrillation
  3. ACENOCOUMAROL [Concomitant]
     Active Substance: ACENOCOUMAROL
     Indication: Atrial fibrillation

REACTIONS (2)
  - Nodular melanoma [Fatal]
  - Product contamination chemical [Fatal]
